FAERS Safety Report 7759881-6 (Version None)
Quarter: 2011Q3

REPORT INFORMATION
  Report Type: 
  Country: None (occurrence: None)
  Receive Date: 20110919
  Receipt Date: 20100628
  Transmission Date: 20111222
  Serious: No
  Sender: FDA-Public Use
  Company Number: US-BAYER-201028791NA

PATIENT
  Sex: Male

DRUGS (1)
  1. MIRENA [Suspect]
     Indication: CONTRACEPTION
     Dosage: 20 MCG/24HR, CONT
     Route: 015
     Dates: start: 20070701

REACTIONS (5)
  - NAUSEA [None]
  - PENILE PAIN [None]
  - ABDOMINAL PAIN [None]
  - GENITAL HAEMORRHAGE [None]
  - HEADACHE [None]
